FAERS Safety Report 14450417 (Version 1)
Quarter: 2018Q1

REPORT INFORMATION
  Report Type: Spontaneous
  Country: US (occurrence: US)
  Receive Date: 20180129
  Receipt Date: 20180129
  Transmission Date: 20180509
  Serious: Yes (Other)
  Sender: FDA-Public Use
  Company Number: US-CONCORDIA PHARMACEUTICALS INC.-GSH201801-000353

PATIENT
  Sex: Female
  Weight: 48.64 kg

DRUGS (4)
  1. SULFASALAZINE. [Suspect]
     Active Substance: SULFASALAZINE
     Indication: RHEUMATOID ARTHRITIS
     Dates: start: 201512, end: 201604
  2. PLAQUENIL [Suspect]
     Active Substance: HYDROXYCHLOROQUINE SULFATE
     Indication: RHEUMATOID ARTHRITIS
     Dates: start: 201605
  3. ARAVA [Concomitant]
     Active Substance: LEFLUNOMIDE
     Dates: start: 201512
  4. ARAVA [Concomitant]
     Active Substance: LEFLUNOMIDE
     Indication: RHEUMATOID ARTHRITIS
     Dates: start: 201509, end: 201511

REACTIONS (4)
  - Peripheral swelling [Unknown]
  - Drug hypersensitivity [Unknown]
  - Tremor [Unknown]
  - Heart rate irregular [Unknown]
